FAERS Safety Report 18789327 (Version 1)
Quarter: 2021Q1

REPORT INFORMATION
  Report Type: Report from Study
  Country: RO (occurrence: RO)
  Receive Date: 20210126
  Receipt Date: 20210126
  Transmission Date: 20210419
  Serious: Yes (Other)
  Sender: FDA-Public Use
  Company Number: RO-ASTRAZENECA-2021A012479

PATIENT
  Sex: Female

DRUGS (2)
  1. LYNPARZA [Suspect]
     Active Substance: OLAPARIB
     Indication: OVARIAN CANCER
     Dosage: DAILY DOSE IS 2 CP/DAY
     Route: 048
     Dates: end: 20210117
  2. LYNPARZA [Suspect]
     Active Substance: OLAPARIB
     Indication: OVARIAN CANCER
     Route: 048
     Dates: start: 201808

REACTIONS (4)
  - Lymphadenopathy [Unknown]
  - Therapy non-responder [Unknown]
  - Tumour marker increased [Unknown]
  - Pleural mass [Unknown]
